FAERS Safety Report 6215739-5 (Version None)
Quarter: 2009Q2

REPORT INFORMATION
  Report Type: 
  Country: None (occurrence: None)
  Receive Date: 20090605
  Receipt Date: 20090526
  Transmission Date: 20091009
  Serious: No
  Sender: FDA-Public Use
  Company Number: US-B.I. PHARMACEUTICALS,INC./RIDGEFIELD-2009-BP-06439BP

PATIENT
  Sex: Male

DRUGS (4)
  1. MICARDIS HCT [Suspect]
     Indication: HYPERTENSION
     Route: 048
     Dates: start: 20070526
  2. MICARDIS [Suspect]
     Indication: HYPERTENSION
     Dosage: 40MG
     Dates: start: 20070526
  3. CRESTOR [Concomitant]
     Indication: BLOOD CHOLESTEROL INCREASED
     Dosage: 5MG
     Dates: start: 20050101
  4. ALLEGRA D 24 HOUR [Concomitant]
     Indication: SEASONAL ALLERGY
     Dates: start: 20080801

REACTIONS (5)
  - ABDOMINAL PAIN UPPER [None]
  - DRY MOUTH [None]
  - ERUCTATION [None]
  - MIGRAINE [None]
  - VERTIGO [None]
